FAERS Safety Report 13188751 (Version 1)
Quarter: 2017Q1

REPORT INFORMATION
  Report Type: Spontaneous
  Country: FR (occurrence: FR)
  Receive Date: 20170206
  Receipt Date: 20170206
  Transmission Date: 20170428
  Serious: Yes (Other)
  Sender: FDA-Public Use
  Company Number: FR-TEVA-734702ROM

PATIENT
  Sex: Female

DRUGS (3)
  1. INEXIUM [Concomitant]
     Active Substance: ESOMEPRAZOLE
     Dosage: STARTED 3 WEEKS AGO
     Dates: start: 201701
  2. COPAXONE [Suspect]
     Active Substance: GLATIRAMER ACETATE
     Dates: start: 201609
  3. SPAGULAX [Concomitant]
     Active Substance: PLANTAGO OVATA SEED
     Dosage: STARTED 1 WEEK AGO
     Dates: start: 201701

REACTIONS (5)
  - Erythema [Recovered/Resolved]
  - Swelling face [Recovered/Resolved]
  - Skin burning sensation [Recovered/Resolved]
  - Pruritus [Recovered/Resolved]
  - Throat tightness [Recovered/Resolved]
